FAERS Safety Report 9880701 (Version 1)
Quarter: 2014Q1

REPORT INFORMATION
  Report Type: Spontaneous
  Country: JP (occurrence: JP)
  Receive Date: 20140207
  Receipt Date: 20140207
  Transmission Date: 20141002
  Serious: Yes (Death, Other)
  Sender: FDA-Public Use
  Company Number: JP-ELI_LILLY_AND_COMPANY-JP201402001108

PATIENT
  Age: 59 Year
  Sex: Male

DRUGS (1)
  1. TADALAFIL [Suspect]
     Indication: PULMONARY ARTERIAL HYPERTENSION
     Route: 065

REACTIONS (2)
  - Pneumonia [Fatal]
  - Pulmonary oedema [Unknown]
